FAERS Safety Report 5165065-0 (Version None)
Quarter: 2006Q4

REPORT INFORMATION
  Report Type: 
  Country: None (occurrence: None)
  Receive Date: 20061124
  Receipt Date: 20061115
  Transmission Date: 20070319
  Serious: Yes (Hospitalization)
  Sender: FDA-Public Use
  Company Number: 2005130898

PATIENT
  Age: 77 Year
  Sex: Female

DRUGS (5)
  1. CELEBREX [Suspect]
     Dosage: 1 DOSE FORM (200 MG, 1 D), ORAL
     Route: 048
     Dates: end: 20050310
  2. CLONAZEPAM [Suspect]
     Dosage: ORAL
     Route: 048
  3. ACTONEL [Suspect]
     Indication: OSTEOPOROSIS
     Dosage: 1 DOSE FORM (WEEKLY), ORAL
     Route: 048
  4. CLONAZEPAM [Concomitant]
  5. ALL OTHER THERAPEUTIC PRODUCTS (ALL OTHER THERAPEUTIC PRODUCTS) [Concomitant]

REACTIONS (1)
  - PERIPHERAL ISCHAEMIA [None]
